FAERS Safety Report 6375234-X (Version None)
Quarter: 2009Q3

REPORT INFORMATION
  Report Type: 
  Country: None (occurrence: None)
  Receive Date: 20090924
  Receipt Date: 20090910
  Transmission Date: 20100115
  Serious: Yes (Hospitalization)
  Sender: FDA-Public Use
  Company Number: DE-PFIZER INC-2009266604

PATIENT

DRUGS (3)
  1. LYRICA [Suspect]
     Indication: HERPES ZOSTER
     Dosage: 75 MG, 1X/DAY
     Route: 048
     Dates: start: 20090801, end: 20090901
  2. CARBAMAZEPINE [Suspect]
     Dosage: UNK
     Dates: end: 20090101
  3. TRAMADOL HYDROCHLORIDE [Suspect]
     Dosage: UNK
     Dates: end: 20090101

REACTIONS (2)
  - APATHY [None]
  - UNRESPONSIVE TO STIMULI [None]
